FAERS Safety Report 9792929 (Version 1)
Quarter: 2014Q1

REPORT INFORMATION
  Report Type: Spontaneous
  Country: US (occurrence: US)
  Receive Date: 20140102
  Receipt Date: 20140102
  Transmission Date: 20141002
  Serious: No
  Sender: FDA-Public Use
  Company Number: US-SA-2013SA129978

PATIENT
  Age: 65 Year
  Sex: Female

DRUGS (12)
  1. AUBAGIO [Suspect]
     Indication: MULTIPLE SCLEROSIS
     Route: 048
     Dates: start: 201311, end: 201312
  2. CYMBALTA [Concomitant]
  3. IBANDRONATE SODIUM [Concomitant]
  4. SINGULAIR [Concomitant]
  5. DIAZEPAM [Concomitant]
  6. BACLOFEN [Concomitant]
  7. ALBUTEROL [Concomitant]
  8. SEROQUEL [Concomitant]
  9. SPIRIVA [Concomitant]
  10. OXYCONTIN [Concomitant]
  11. ULTRAM [Concomitant]
  12. ARICEPT [Concomitant]

REACTIONS (1)
  - Diarrhoea [Recovered/Resolved]
